FAERS Safety Report 14237476 (Version 1)
Quarter: 2017Q4

REPORT INFORMATION
  Report Type: Spontaneous
  Country: FR (occurrence: FR)
  Receive Date: 20171129
  Receipt Date: 20171129
  Transmission Date: 20180321
  Serious: Yes (Hospitalization)
  Sender: FDA-Public Use
  Company Number: FR-VERTEX PHARMACEUTICALS-2017-006603

PATIENT
  Age: 17 Year
  Sex: Female

DRUGS (1)
  1. ORKAMBI [Suspect]
     Active Substance: IVACAFTOR\LUMACAFTOR
     Indication: CYSTIC FIBROSIS
     Route: 048

REACTIONS (5)
  - Increased bronchial secretion [Recovered/Resolved]
  - Vomiting [Unknown]
  - Respiratory tract infection [Unknown]
  - Sputum increased [Unknown]
  - Forced expiratory volume decreased [Recovering/Resolving]
